FAERS Safety Report 6647140-4 (Version None)
Quarter: 2010Q1

REPORT INFORMATION
  Report Type: 
  Country: None (occurrence: None)
  Receive Date: 20100323
  Receipt Date: 20100318
  Transmission Date: 20100710
  Serious: Yes (Death, Hospitalization)
  Sender: FDA-Public Use
  Company Number: PHHO2010US00820

PATIENT
  Age: 64 Year
  Sex: Female
  Weight: 50 kg

DRUGS (1)
  1. AFINITOR [Suspect]
     Indication: DIFFUSE LARGE B-CELL LYMPHOMA
     Dosage: 10 MG, QD
     Route: 048
     Dates: start: 20091019

REACTIONS (14)
  - ASCITES [None]
  - CLOSTRIDIAL INFECTION [None]
  - COLECTOMY [None]
  - DIARRHOEA [None]
  - DISORIENTATION [None]
  - FREQUENT BOWEL MOVEMENTS [None]
  - HYPOPHAGIA [None]
  - HYPOXIA [None]
  - INTESTINAL ISCHAEMIA [None]
  - MALIGNANT NEOPLASM PROGRESSION [None]
  - MULTI-ORGAN FAILURE [None]
  - OEDEMA PERIPHERAL [None]
  - SMALL INTESTINAL OBSTRUCTION [None]
  - TUMOUR NECROSIS [None]
